FAERS Safety Report 23143748 (Version 2)
Quarter: 2025Q1

REPORT INFORMATION
  Report Type: Spontaneous
  Country: US (occurrence: US)
  Receive Date: 20231103
  Receipt Date: 20250325
  Transmission Date: 20250409
  Serious: No
  Sender: SUNOVION
  Company Number: US-MYOVANT SCIENCES GMBH-2023MYSCI0700242

PATIENT

DRUGS (4)
  1. ORGOVYX [Suspect]
     Active Substance: RELUGOLIX
     Indication: Prostate cancer
     Dosage: 120 MILLIGRAM, QD
     Route: 048
  2. ORGOVYX [Suspect]
     Active Substance: RELUGOLIX
     Indication: Blood testosterone abnormal
  3. XTANDI [Suspect]
     Active Substance: ENZALUTAMIDE
     Indication: Prostate cancer
     Dosage: 160 MILLIGRAM, QD
     Route: 048
     Dates: start: 20230215
  4. XTANDI [Suspect]
     Active Substance: ENZALUTAMIDE
     Indication: Blood testosterone abnormal

REACTIONS (4)
  - Taste disorder [Unknown]
  - Ageusia [Unknown]
  - Fatigue [Not Recovered/Not Resolved]
  - Asthenia [Unknown]
